FAERS Safety Report 6133890-5 (Version None)
Quarter: 2009Q1

REPORT INFORMATION
  Report Type: 
  Country: None (occurrence: None)
  Receive Date: 20090326
  Receipt Date: 20090317
  Transmission Date: 20090719
  Serious: Yes (Other)
  Sender: FDA-Public Use
  Company Number: US-PFIZER INC-2007107743

PATIENT
  Sex: Female
  Weight: 79.365 kg

DRUGS (10)
  1. CHANTIX [Suspect]
     Indication: SMOKING CESSATION THERAPY
     Dosage: UNK
     Dates: start: 20071017, end: 20080101
  2. FLUOXETINE HCL [Concomitant]
  3. BUSPAR [Concomitant]
  4. GABAPENTIN [Concomitant]
  5. NEXIUM [Concomitant]
  6. VITAMINS [Concomitant]
  7. CALCIUM [Concomitant]
  8. IMODIUM A-D [Concomitant]
     Dosage: UNK
  9. PROZAC [Concomitant]
  10. DIAZEPAM [Concomitant]

REACTIONS (2)
  - GASTROINTESTINAL INFECTION [None]
  - HAEMATOCHEZIA [None]
